FAERS Safety Report 10607545 (Version 1)
Quarter: 2014Q4

REPORT INFORMATION
  Report Type: Spontaneous
  Country: US (occurrence: None)
  Receive Date: 20141124
  Receipt Date: 20141124
  Transmission Date: 20150529
  Serious: Yes (Hospitalization)
  Sender: FDA-Public Use
  Company Number: None

PATIENT
  Age: 81 Year
  Sex: Female
  Weight: 85.1 kg

DRUGS (17)
  1. SEPTRA [Suspect]
     Active Substance: SULFAMETHOXAZOLE\TRIMETHOPRIM
     Indication: PRODUCT USED FOR UNKNOWN INDICATION
     Dosage: RECENT
     Route: 048
  2. VITAMIN B12 [Concomitant]
     Active Substance: CYANOCOBALAMIN
  3. TUMS [Concomitant]
     Active Substance: CALCIUM CARBONATE
  4. COUMADIN [Suspect]
     Active Substance: WARFARIN SODIUM
     Indication: PRODUCT USED FOR UNKNOWN INDICATION
     Dosage: CHRONIC?2.5MG SSMWTH PO
     Route: 048
  5. LANSOPRAZOLE. [Concomitant]
     Active Substance: LANSOPRAZOLE
  6. KENALOG [Suspect]
     Active Substance: TRIAMCINOLONE ACETONIDE
  7. MACRODANTIN [Suspect]
     Active Substance: NITROFURANTOIN
     Indication: PRODUCT USED FOR UNKNOWN INDICATION
     Dosage: RECENT
  8. DOXYCYCLINE. [Suspect]
     Active Substance: DOXYCYCLINE
     Indication: PRODUCT USED FOR UNKNOWN INDICATION
     Dosage: RECENT
  9. TRAMADOL [Concomitant]
     Active Substance: TRAMADOL
  10. DEBROX [Concomitant]
     Active Substance: CARBAMIDE PEROXIDE
  11. THERAGRAN [Concomitant]
     Active Substance: VITAMINS
  12. APAP [Concomitant]
     Active Substance: ACETAMINOPHEN
  13. MYCOSTATIN [Concomitant]
     Active Substance: NYSTATIN
  14. COREG [Concomitant]
     Active Substance: CARVEDILOL
  15. VOLTAREN [Concomitant]
     Active Substance: DICLOFENAC SODIUM
  16. MIRAPEX [Concomitant]
     Active Substance: PRAMIPEXOLE DIHYDROCHLORIDE
  17. DOCUSATE [Concomitant]
     Active Substance: DOCUSATE

REACTIONS (5)
  - Haematoma [None]
  - Haemorrhagic anaemia [None]
  - International normalised ratio increased [None]
  - Drug interaction [None]
  - Hypotension [None]

NARRATIVE: CASE EVENT DATE: 20140629
